FAERS Safety Report 18700712 (Version 1)
Quarter: 2021Q1

REPORT INFORMATION
  Report Type: Spontaneous
  Country: US (occurrence: US)
  Receive Date: 20210105
  Receipt Date: 20210105
  Transmission Date: 20210419
  Serious: No
  Sender: FDA-Public Use
  Company Number: US-TEVA-2020-US-1864763

PATIENT
  Age: 54 Year
  Sex: Female

DRUGS (4)
  1. TRAMADOL. [Concomitant]
     Active Substance: TRAMADOL
     Route: 065
  2. MOTRIN [Concomitant]
     Active Substance: IBUPROFEN
     Route: 065
  3. NORCO [Concomitant]
     Active Substance: ACETAMINOPHEN\HYDROCODONE BITARTRATE
     Route: 065
  4. COPAXONE [Suspect]
     Active Substance: GLATIRAMER ACETATE
     Indication: MULTIPLE SCLEROSIS
     Route: 058
     Dates: start: 20140826

REACTIONS (1)
  - COVID-19 [Not Recovered/Not Resolved]

NARRATIVE: CASE EVENT DATE: 20201216
